FAERS Safety Report 5749040-0 (Version None)
Quarter: 2008Q2

REPORT INFORMATION
  Report Type: 
  Country: None (occurrence: None)
  Receive Date: 20080522
  Receipt Date: 20080507
  Transmission Date: 20081010
  Serious: Yes (Other)
  Sender: FDA-Public Use
  Company Number: 8030723

PATIENT
  Sex: Female

DRUGS (2)
  1. KEPPRA [Suspect]
     Dosage: 1000 MG 2/D PO
     Route: 048
  2. TOPAMAX [Concomitant]

REACTIONS (4)
  - GALLBLADDER DISORDER [None]
  - HEPATIC CYST [None]
  - LIVER FUNCTION TEST ABNORMAL [None]
  - RENAL CYST [None]
